FAERS Safety Report 21391466 (Version 1)
Quarter: 2022Q3

REPORT INFORMATION
  Report Type: Spontaneous
  Country: DE (occurrence: DE)
  Receive Date: 20220929
  Receipt Date: 20220929
  Transmission Date: 20221027
  Serious: Yes (Hospitalization)
  Sender: FDA-Public Use
  Company Number: DE-NOVARTISPH-NVSC2022DE217277

PATIENT
  Age: 70 Year
  Sex: Female
  Weight: 75 kg

DRUGS (5)
  1. VENLAFAXINE [Suspect]
     Active Substance: VENLAFAXINE HYDROCHLORIDE
     Indication: Product used for unknown indication
     Dosage: 37.5 MG, QD (1-0-0-0, RETARD-KAPSELN)
     Route: 048
  2. BENSERAZIDE\LEVODOPA [Suspect]
     Active Substance: BENSERAZIDE\LEVODOPA
     Indication: Product used for unknown indication
     Dosage: UNK (25|100 MG, 5X, TABLETTEN)
     Route: 048
  3. RASAGILINE [Suspect]
     Active Substance: RASAGILINE
     Indication: Product used for unknown indication
     Dosage: 1 MG, QD (1-0-0-0, TABLETTEN)
     Route: 048
  4. OPICAPONE [Suspect]
     Active Substance: OPICAPONE
     Indication: Product used for unknown indication
     Dosage: UNK (ABGESETZT AM 17052021)
     Route: 065
  5. LORAZEPAM [Concomitant]
     Active Substance: LORAZEPAM
     Indication: Product used for unknown indication
     Dosage: 1 MG (BEDARF, TABLETTEN)
     Route: 048

REACTIONS (4)
  - Serotonin syndrome [Unknown]
  - Panic reaction [Unknown]
  - Hallucination [Unknown]
  - Anxiety [Unknown]
